FAERS Safety Report 11107316 (Version 1)
Quarter: 2015Q2

REPORT INFORMATION
  Report Type: Spontaneous
  Country: US (occurrence: US)
  Receive Date: 20150512
  Receipt Date: 20150512
  Transmission Date: 20150821
  Serious: No
  Sender: FDA-Public Use
  Company Number: US-PFIZER INC-2015156727

PATIENT
  Age: 71 Year
  Sex: Male
  Weight: 72 kg

DRUGS (1)
  1. PANTOPRAZOLE [Suspect]
     Active Substance: PANTOPRAZOLE SODIUM
     Indication: DYSPEPSIA
     Dosage: 40 MG, DAILY

REACTIONS (2)
  - Abdominal discomfort [Recovered/Resolved]
  - Drug ineffective [Unknown]
